FAERS Safety Report 9004074 (Version 2)
Quarter: 2013Q1

REPORT INFORMATION
  Report Type: Spontaneous
  Country: IT (occurrence: IT)
  Receive Date: 20130109
  Receipt Date: 20130129
  Transmission Date: 20140127
  Serious: Yes (Death, Hospitalization, Other)
  Sender: FDA-Public Use
  Company Number: IT-RANBAXY-2012RR-63869

PATIENT
  Age: 23 Year
  Sex: Male

DRUGS (9)
  1. CLARITHROMYCIN [Suspect]
     Indication: OROPHARYNGEAL PAIN
     Dosage: 4 X 500MG TABLETS, ON THE FIRST DAY OF TREATMENT
     Route: 048
     Dates: start: 2011
  2. CLARITHROMYCIN [Suspect]
     Indication: OROPHARYNGEAL PAIN
     Dosage: 500 MG, QD
     Route: 048
     Dates: start: 2011
  3. AMISULPRIDE [Suspect]
     Indication: SCHIZOAFFECTIVE DISORDER
     Dosage: UNK
     Route: 065
     Dates: end: 2011
  4. FLUPHENAZINE [Suspect]
     Indication: SCHIZOAFFECTIVE DISORDER
     Dosage: UNK
     Route: 065
     Dates: end: 2011
  5. LITHIUM [Suspect]
     Indication: SCHIZOAFFECTIVE DISORDER
     Dosage: UNK
     Route: 065
     Dates: end: 2011
  6. ORPHENADRINE [Suspect]
     Indication: SCHIZOAFFECTIVE DISORDER
     Dosage: UNK
     Route: 065
     Dates: end: 2011
  7. PARACETAMOL [Concomitant]
     Indication: PYREXIA
     Dosage: UNK
     Route: 065
     Dates: start: 2011
  8. METOCLOPRAMIDE [Concomitant]
     Indication: VOMITING
     Dosage: UNK
     Route: 065
     Dates: start: 2011
  9. SCOPOLAMINE [Concomitant]
     Indication: VOMITING
     Dosage: UNK
     Route: 065
     Dates: start: 2011

REACTIONS (2)
  - Hepatitis fulminant [Fatal]
  - Incorrect dose administered [Unknown]
